FAERS Safety Report 9189911 (Version 1)
Quarter: 2013Q1

REPORT INFORMATION
  Report Type: Spontaneous
  Country: US (occurrence: None)
  Receive Date: 20130322
  Receipt Date: 20130322
  Transmission Date: 20140127
  Serious: Yes (Hospitalization)
  Sender: FDA-Public Use
  Company Number: None

PATIENT
  Age: 77 Year
  Sex: Female
  Weight: 70.5 kg

DRUGS (1)
  1. HYDRALAZINE [Suspect]
     Indication: HYPERTENSION
     Dosage: 50 MG THREE TIMES DAILY PO
     Route: 048
     Dates: start: 20121224, end: 20130318

REACTIONS (2)
  - Rash [None]
  - Lupus-like syndrome [None]
